FAERS Safety Report 5982972-7 (Version None)
Quarter: 2008Q4

REPORT INFORMATION
  Report Type: 
  Country: None (occurrence: None)
  Receive Date: 20081208
  Receipt Date: 20081203
  Transmission Date: 20090506
  Serious: Yes (Death, Other)
  Sender: FDA-Public Use
  Company Number: PHHY2008JP30859

PATIENT
  Sex: Female
  Weight: 39 kg

DRUGS (7)
  1. DIOVAN [Suspect]
     Indication: HYPERTENSION
     Dosage: 80 MG DAILY
     Route: 048
     Dates: start: 20071004, end: 20080808
  2. CALBLOCK [Concomitant]
     Indication: HYPERTENSION
     Dosage: 16 MG
     Route: 048
     Dates: start: 20071026, end: 20080428
  3. TENORMIN [Concomitant]
     Indication: HYPERTENSION
     Dosage: 50 MG
     Route: 048
     Dates: start: 20080423, end: 20080808
  4. NORVASC [Concomitant]
     Indication: HYPERTENSION
     Dosage: 10 MG
     Route: 048
     Dates: start: 20080423, end: 20080808
  5. ONEALFA [Concomitant]
     Dosage: 1 MG
     Route: 048
     Dates: start: 20031104, end: 20080808
  6. OSTELUC [Concomitant]
     Dosage: 400 MG
     Route: 048
     Dates: start: 20031104, end: 20080808
  7. EURODIN [Concomitant]
     Dosage: 2 MG
     Route: 048
     Dates: start: 20070111, end: 20080808

REACTIONS (6)
  - BLOOD CREATININE INCREASED [None]
  - BLOOD POTASSIUM DECREASED [None]
  - BLOOD PRESSURE DECREASED [None]
  - BLOOD PRESSURE INCREASED [None]
  - BLOOD UREA INCREASED [None]
  - MARASMUS [None]
